FAERS Safety Report 21114262 (Version 1)
Quarter: 2022Q3

REPORT INFORMATION
  Report Type: Report from Study
  Country: NG (occurrence: NG)
  Receive Date: 20220721
  Receipt Date: 20220721
  Transmission Date: 20221027
  Serious: Yes (Hospitalization)
  Sender: FDA-Public Use
  Company Number: NG-NOVARTISPH-NVSC2022NG165314

PATIENT
  Age: 32 Year
  Sex: Female

DRUGS (1)
  1. ARTEMETHER\LUMEFANTRINE [Suspect]
     Active Substance: ARTEMETHER\LUMEFANTRINE
     Indication: Malaria
     Dosage: UNK (4 FOR A START AND 4 AFTER 8 HOURS AND 4 IN MORNING AND 4 IN EVENING)
     Route: 048
     Dates: start: 20220522, end: 20220524

REACTIONS (1)
  - Pyrexia [Recovered/Resolved]
